FAERS Safety Report 5776933-0 (Version None)
Quarter: 2008Q2

REPORT INFORMATION
  Report Type: 
  Country: None (occurrence: None)
  Receive Date: 20080618
  Receipt Date: 20080613
  Transmission Date: 20081010
  Serious: Yes (Hospitalization)
  Sender: FDA-Public Use
  Company Number: B0524407A

PATIENT
  Age: 65 Year
  Sex: Female
  Weight: 67 kg

DRUGS (3)
  1. LAPATINIB [Suspect]
     Dosage: 1250MGD PER DAY
     Dates: start: 20080508, end: 20080529
  2. CAPECITABINE [Suspect]
     Dosage: 3500MGD PER DAY
     Route: 048
     Dates: start: 20080508, end: 20080529
  3. IRBESARTAN [Suspect]
     Indication: HYPERTENSION
     Dosage: 150MG PER DAY
     Route: 048

REACTIONS (3)
  - ATRIAL FIBRILLATION [None]
  - HYPOKALAEMIA [None]
  - PALPITATIONS [None]
